FAERS Safety Report 15223838 (Version 3)
Quarter: 2018Q3

REPORT INFORMATION
  Report Type: Spontaneous
  Country: PE (occurrence: PE)
  Receive Date: 20180731
  Receipt Date: 20180817
  Transmission Date: 20181010
  Serious: Yes (Death, Hospitalization, Other)
  Sender: FDA-Public Use
  Company Number: PE-B.I. PHARMACEUTICALS,INC./RIDGEFIELD-2018-BI-038637

PATIENT
  Age: 21 Year
  Sex: Female
  Weight: 75 kg

DRUGS (3)
  1. KOMBIGLYZE XR [Concomitant]
     Active Substance: METFORMIN HYDROCHLORIDE\SAXAGLIPTIN HYDROCHLORIDE
     Indication: TYPE 2 DIABETES MELLITUS
     Dosage: FORM STRENGTH: 2.5/1000 MILLIGRAM
     Route: 048
     Dates: end: 20180726
  2. JARDIANCE [Suspect]
     Active Substance: EMPAGLIFLOZIN
     Indication: TYPE 2 DIABETES MELLITUS
     Route: 048
     Dates: start: 2017, end: 20180726
  3. DIAMICRON [Concomitant]
     Active Substance: GLICLAZIDE
     Indication: TYPE 2 DIABETES MELLITUS
     Route: 048
     Dates: end: 20180726

REACTIONS (4)
  - Diabetic ketoacidosis [Recovered/Resolved]
  - Pulmonary sepsis [Fatal]
  - Gastroenteritis [Unknown]
  - Abdominal pain [Unknown]

NARRATIVE: CASE EVENT DATE: 201807
